FAERS Safety Report 10756082 (Version 1)
Quarter: 2015Q1

REPORT INFORMATION
  Report Type: Spontaneous
  Country: US (occurrence: US)
  Receive Date: 20150202
  Receipt Date: 20150202
  Transmission Date: 20150721
  Serious: Yes (Other)
  Sender: FDA-Public Use
  Company Number: PHHY2014US171944

PATIENT

DRUGS (1)
  1. CHLORTALIDONE [Suspect]
     Active Substance: CHLORTHALIDONE
     Indication: HYPERTENSION
     Dosage: 25 MG, QD
     Route: 065

REACTIONS (3)
  - Ischaemic stroke [Unknown]
  - Hypotension [Unknown]
  - Syncope [Unknown]
